FAERS Safety Report 4324813-X (Version None)
Quarter: 2004Q1

REPORT INFORMATION
  Report Type: 
  Country: None (occurrence: None)
  Receive Date: 20040326
  Receipt Date: 20040319
  Transmission Date: 20041129
  Serious: Yes (Other)
  Sender: FDA-Public Use
  Company Number: FR-GLAXOSMITHKLINE-B0327761A

PATIENT
  Age: 37 Year
  Sex: Female

DRUGS (1)
  1. ZYBAN [Suspect]
     Dosage: 150MG PER DAY
     Route: 048
     Dates: start: 20040101, end: 20040101

REACTIONS (5)
  - ARTHRALGIA [None]
  - HAEMATOMA [None]
  - MYALGIA [None]
  - OEDEMA PERIPHERAL [None]
  - SERUM SICKNESS [None]
